FAERS Safety Report 15694283 (Version 1)
Quarter: 2018Q4

REPORT INFORMATION
  Report Type: Spontaneous
  Country: US (occurrence: US)
  Receive Date: 20181206
  Receipt Date: 20181206
  Transmission Date: 20190205
  Serious: No
  Sender: FDA-Public Use
  Company Number: US-SA-2018SA330258

PATIENT

DRUGS (1)
  1. ZANTAC [Suspect]
     Active Substance: RANITIDINE HYDROCHLORIDE
     Dosage: CRUSHED UP A RANITIDINE HYDROCHLORIDE 150 AND SPRINKLE IT ONTO PATIENT?S CHOP CHEESE

REACTIONS (1)
  - Product use issue [Unknown]
